FAERS Safety Report 18848133 (Version 4)
Quarter: 2021Q1

REPORT INFORMATION
  Report Type: Report from Study
  Country: BR (occurrence: BR)
  Receive Date: 20210204
  Receipt Date: 20210312
  Transmission Date: 20210419
  Serious: Yes (Hospitalization, Other)
  Sender: FDA-Public Use
  Company Number: BR-IPSEN BIOPHARMACEUTICALS, INC.-2021-02747

PATIENT
  Age: 27 Year
  Sex: Female
  Weight: 52 kg

DRUGS (1)
  1. SOMATULINE AUTOGEL [Suspect]
     Active Substance: LANREOTIDE ACETATE
     Indication: NEUROENDOCRINE TUMOUR
     Route: 058
     Dates: start: 201807, end: 201911

REACTIONS (22)
  - Decreased appetite [Unknown]
  - Hypertension [Recovered/Resolved]
  - Injection site pain [Recovered/Resolved]
  - Hypovitaminosis [Recovered/Resolved]
  - Migraine [Recovered/Resolved]
  - Vision blurred [Recovered/Resolved]
  - Intracranial aneurysm [Recovered/Resolved]
  - Asthenia [Recovered/Resolved]
  - Nausea [Recovering/Resolving]
  - Neoplasm progression [Not Recovered/Not Resolved]
  - Abdominal pain [Recovered/Resolved]
  - Coma [Recovered/Resolved]
  - Anaemia [Recovered/Resolved]
  - Arterial rupture [Recovered/Resolved]
  - Diarrhoea [Recovered/Resolved]
  - Injection site nodule [Recovered/Resolved]
  - Alopecia [Recovered/Resolved]
  - Pancreatic disorder [Recovered/Resolved]
  - Nodule [Not Recovered/Not Resolved]
  - Product dose omission issue [Unknown]
  - Vomiting [Recovered/Resolved]
  - Weight decreased [Recovered/Resolved]

NARRATIVE: CASE EVENT DATE: 2018
